FAERS Safety Report 24722570 (Version 3)
Quarter: 2024Q4

REPORT INFORMATION
  Report Type: Report from Study
  Country: US (occurrence: US)
  Receive Date: 20241211
  Receipt Date: 20241226
  Transmission Date: 20250115
  Serious: No
  Sender: ABBVIE
  Company Number: US-ABBVIE-6031277

PATIENT
  Age: 60 Year
  Sex: Female

DRUGS (2)
  1. FOSCARBIDOPA\FOSLEVODOPA [Suspect]
     Active Substance: FOSCARBIDOPA\FOSLEVODOPA
     Indication: Parkinson^s disease
     Route: 058
     Dates: start: 20241113
  2. FOSCARBIDOPA\FOSLEVODOPA [Suspect]
     Active Substance: FOSCARBIDOPA\FOSLEVODOPA
     Route: 058
     Dates: start: 20241113

REACTIONS (6)
  - Cellulitis [Recovering/Resolving]
  - Injection site erythema [Recovering/Resolving]
  - Infusion site abscess [Recovering/Resolving]
  - Infusion site extravasation [Not Recovered/Not Resolved]
  - Injection site swelling [Recovering/Resolving]
  - Injection site warmth [Recovering/Resolving]

NARRATIVE: CASE EVENT DATE: 20241101
